FAERS Safety Report 14168836 (Version 1)
Quarter: 2017Q4

REPORT INFORMATION
  Report Type: Spontaneous
  Country: US (occurrence: US)
  Receive Date: 20171108
  Receipt Date: 20171108
  Transmission Date: 20180321
  Serious: No
  Sender: FDA-Public Use
  Company Number: US-PFIZER INC-2017477851

PATIENT
  Age: 69 Year
  Sex: Female

DRUGS (1)
  1. XELJANZ XR [Suspect]
     Active Substance: TOFACITINIB CITRATE
     Dosage: UNK

REACTIONS (11)
  - Dizziness [Unknown]
  - Decreased appetite [Unknown]
  - Anxiety [Unknown]
  - Hyperhidrosis [Unknown]
  - Chills [Unknown]
  - Pollakiuria [Unknown]
  - Palpitations [Unknown]
  - Sinus congestion [Unknown]
  - Abdominal discomfort [Unknown]
  - Fatigue [Unknown]
  - Hypertension [Unknown]
